FAERS Safety Report 8223306-7 (Version None)
Quarter: 2012Q1

REPORT INFORMATION
  Report Type: 
  Country: None (occurrence: None)
  Receive Date: 20120321
  Receipt Date: 20120312
  Transmission Date: 20120608
  Serious: Yes (Other)
  Sender: FDA-Public Use
  Company Number: CA-ROCHE-GNE314952

PATIENT
  Sex: Male
  Weight: 80 kg

DRUGS (6)
  1. XOLAIR [Suspect]
     Dosage: 375 MG, Q2W
     Dates: start: 20091125
  2. XOLAIR [Suspect]
     Dosage: 375 MG, Q2W
     Dates: start: 20091028
  3. XOLAIR [Suspect]
     Indication: ASTHMA
     Dosage: 375 MG, Q2W
     Route: 058
     Dates: start: 20080806
  4. XOLAIR [Suspect]
     Dosage: 375 MG, Q2W
     Route: 058
     Dates: start: 20100414
  5. XOLAIR [Suspect]
     Dates: start: 20120312
  6. VENTOLIN [Concomitant]

REACTIONS (16)
  - NASOPHARYNGITIS [None]
  - SINUS CONGESTION [None]
  - SINUS DISORDER [None]
  - CHEST DISCOMFORT [None]
  - ASTHMA [None]
  - NECK PAIN [None]
  - MYALGIA [None]
  - RESPIRATORY DISORDER [None]
  - INJECTION SITE PAIN [None]
  - WHEEZING [None]
  - INFLUENZA LIKE ILLNESS [None]
  - MALAISE [None]
  - DYSPNOEA [None]
  - OROPHARYNGEAL PAIN [None]
  - FATIGUE [None]
  - INJECTION SITE SWELLING [None]
